FAERS Safety Report 21888313 (Version 1)
Quarter: 2023Q1

REPORT INFORMATION
  Report Type: Report from Study
  Country: FR (occurrence: FR)
  Receive Date: 20230120
  Receipt Date: 20230120
  Transmission Date: 20230417
  Serious: Yes (Hospitalization)
  Sender: FDA-Public Use
  Company Number: FR-ABBVIE-4250970

PATIENT
  Age: 73 Year
  Sex: Male

DRUGS (3)
  1. CARBIDOPA\LEVODOPA [Suspect]
     Active Substance: CARBIDOPA\LEVODOPA
     Indication: Parkinson^s disease
     Dosage: CONTINUOUS FLOW RATE  3.5 ML/H
     Route: 050
  2. CARBIDOPA\LEVODOPA [Suspect]
     Active Substance: CARBIDOPA\LEVODOPA
     Dosage: CONTINUOUS FLOW RATE  4.5 ML/H
     Route: 050
     Dates: start: 20221018
  3. CLOZAPINE [Concomitant]
     Active Substance: CLOZAPINE
     Indication: Product used for unknown indication
     Dosage: 1/2 TABLET
     Route: 065

REACTIONS (2)
  - Hallucination [Not Recovered/Not Resolved]
  - Substance-induced psychotic disorder [Unknown]

NARRATIVE: CASE EVENT DATE: 20221201
